FAERS Safety Report 5682335-8 (Version None)
Quarter: 2008Q1

REPORT INFORMATION
  Report Type: 
  Country: None (occurrence: None)
  Receive Date: 20080327
  Receipt Date: 20080321
  Transmission Date: 20080703
  Serious: Yes (Other)
  Sender: FDA-Public Use
  Company Number: JP-ASTRAZENECA-2008AP01890

PATIENT
  Age: 31164 Day
  Sex: Female

DRUGS (8)
  1. CRESTOR [Suspect]
     Indication: HYPERLIPIDAEMIA
     Route: 048
     Dates: start: 20070905, end: 20070912
  2. OMEPRAL [Concomitant]
     Route: 048
  3. ASPIRIN [Concomitant]
     Route: 048
  4. PANALDINE [Concomitant]
     Route: 048
  5. GRAMALIL [Concomitant]
     Route: 048
  6. ETICALM [Concomitant]
     Route: 048
  7. SPIRONOLACTONE [Concomitant]
     Route: 048
  8. DIART [Concomitant]
     Route: 048

REACTIONS (2)
  - CHROMATURIA [None]
  - MALAISE [None]
